FAERS Safety Report 10085412 (Version 1)
Quarter: 2014Q2

REPORT INFORMATION
  Report Type: Report from Study
  Country: FR (occurrence: FR)
  Receive Date: 20140418
  Receipt Date: 20140418
  Transmission Date: 20141212
  Serious: Yes (Hospitalization)
  Sender: FDA-Public Use
  Company Number: FR-ROCHE-1385911

PATIENT
  Age: 64 Year
  Sex: Female

DRUGS (1)
  1. OMALIZUMAB [Suspect]
     Indication: ASTHMA
     Route: 065

REACTIONS (8)
  - Asthma [Unknown]
  - Asthmatic crisis [Unknown]
  - Agitation [Unknown]
  - Middle insomnia [Unknown]
  - Accident [Unknown]
  - Mood altered [Unknown]
  - Feeling abnormal [Unknown]
  - Headache [Unknown]
